FAERS Safety Report 12583885 (Version 1)
Quarter: 2016Q3

REPORT INFORMATION
  Report Type: Spontaneous
  Country: US (occurrence: US)
  Receive Date: 20160722
  Receipt Date: 20160722
  Transmission Date: 20161109
  Serious: No
  Sender: FDA-Public Use
  Company Number: US-FRI-1000082487

PATIENT
  Sex: Female

DRUGS (2)
  1. NAMENDA XR [Suspect]
     Active Substance: MEMANTINE HYDROCHLORIDE
     Indication: DEMENTIA
     Dosage: 7MG
     Route: 048
     Dates: start: 20130702, end: 20130709
  2. NAMENDA XR [Suspect]
     Active Substance: MEMANTINE HYDROCHLORIDE
     Dosage: 14MG
     Route: 048
     Dates: start: 20130709, end: 20130716

REACTIONS (1)
  - Chest discomfort [Recovered/Resolved]

NARRATIVE: CASE EVENT DATE: 20130715
